FAERS Safety Report 16006027 (Version 1)
Quarter: 2019Q1

REPORT INFORMATION
  Report Type: Spontaneous
  Country: US (occurrence: US)
  Receive Date: 20190226
  Receipt Date: 20190226
  Transmission Date: 20190418
  Serious: Yes (Hospitalization)
  Sender: FDA-Public Use
  Company Number: None

PATIENT
  Age: 67 Year
  Sex: Female

DRUGS (1)
  1. C-THEOPHYLLINE [Suspect]
     Active Substance: THEOPHYLLINE
     Indication: ANOSMIA
     Route: 045

REACTIONS (1)
  - Adverse event [None]

NARRATIVE: CASE EVENT DATE: 20181228
